FAERS Safety Report 8029158 (Version 1)
Quarter: 2020Q3

REPORT INFORMATION
  Report Type: Report from Study
  Country: US (occurrence: GB)
  Receive Date: 20110711
  Receipt Date: 20110711
  Transmission Date: 20201105
  Serious: Yes (Hospitalization, Other)
  Sender: FDA-Public Use
  Company Number: US-ASTRAZENECA-2010SE31887

PATIENT
  Age: 60 Year
  Sex: Female

DRUGS (10)
  1. SELUMETINIB. [Suspect]
     Active Substance: SELUMETINIB
     Route: 048
     Dates: start: 20100622, end: 20100704
  2. SELUMETINIB. [Suspect]
     Active Substance: SELUMETINIB
     Indication: COLORECTAL CANCER
     Route: 048
     Dates: start: 20100616, end: 20100621
  3. PARACETAMOL [Concomitant]
     Active Substance: ACETAMINOPHEN
     Indication: PAIN
     Dates: start: 20100630
  4. ASPIRIN. [Concomitant]
     Active Substance: ASPIRIN
     Dates: start: 20100712
  5. SELUMETINIB. [Suspect]
     Active Substance: SELUMETINIB
     Route: 048
     Dates: start: 20100714
  6. MK?2206 [Suspect]
     Active Substance: INVESTIGATIONAL PRODUCT
     Indication: COLORECTAL CANCER
     Route: 048
     Dates: start: 20100616, end: 20110630
  7. MK?2206 [Suspect]
     Active Substance: INVESTIGATIONAL PRODUCT
     Route: 048
     Dates: end: 20100707
  8. MK?2206 [Suspect]
     Active Substance: INVESTIGATIONAL PRODUCT
     Route: 048
     Dates: start: 20100714
  9. IRBESARTAN. [Concomitant]
     Active Substance: IRBESARTAN
     Indication: HYPERTENSION
     Dates: start: 20100611, end: 20100714
  10. DIPROBASE [Concomitant]
     Indication: RASH
     Dates: start: 20100630

REACTIONS (5)
  - Anaemia [Recovered/Resolved]
  - Pyrexia [Recovered/Resolved]
  - Hypophagia [None]
  - Stomatitis [Recovered/Resolved]
  - Lung neoplasm [None]

NARRATIVE: CASE EVENT DATE: 20100701
